FAERS Safety Report 7551462-2 (Version None)
Quarter: 2011Q2

REPORT INFORMATION
  Report Type: 
  Country: None (occurrence: None)
  Receive Date: 20110616
  Receipt Date: 20110601
  Transmission Date: 20111010
  Serious: Yes (Hospitalization)
  Sender: FDA-Public Use
  Company Number: DK-JNJFOC-20110508497

PATIENT
  Age: 60 Year
  Sex: Male
  Weight: 90 kg

DRUGS (8)
  1. REMICADE [Suspect]
     Indication: SERONEGATIVE ARTHRITIS
     Route: 042
     Dates: start: 20090907, end: 20100225
  2. ALENDRONATE SODIUM [Concomitant]
  3. METHOTREXATE SODIUM [Concomitant]
  4. IBUPROFEN [Concomitant]
     Route: 048
  5. ACETAMINOPHEN [Concomitant]
  6. FOLIMET [Concomitant]
  7. ENBREL [Suspect]
     Indication: PRODUCT USED FOR UNKNOWN INDICATION
     Dates: start: 20100226, end: 20101116
  8. SIMVASTATIN [Concomitant]

REACTIONS (1)
  - LANGERHANS' CELL HISTIOCYTOSIS [None]
